FAERS Safety Report 15760344 (Version 2)
Quarter: 2019Q1

REPORT INFORMATION
  Report Type: Report from Study
  Country: US (occurrence: US)
  Receive Date: 20181226
  Receipt Date: 20190117
  Transmission Date: 20190417
  Serious: Yes (Hospitalization, Other)
  Sender: FDA-Public Use
  Company Number: US-BAYER-2018-193836

PATIENT
  Age: 51 Year
  Sex: Male

DRUGS (2)
  1. STIVARGA [Suspect]
     Active Substance: REGORAFENIB
     Indication: COLORECTAL CANCER
     Dosage: DAILY DOSE 160 MG FOR 21 DAYS ON AND 7 DAYS OFF
     Route: 048
     Dates: start: 20181003, end: 2018
  2. STIVARGA [Suspect]
     Active Substance: REGORAFENIB
     Indication: COLORECTAL CANCER
     Dosage: DAILY DOSE 160 MG
     Route: 048
     Dates: start: 20181013

REACTIONS (31)
  - Faeces discoloured [None]
  - Gastric perforation [None]
  - Abdominal pain upper [Recovered/Resolved]
  - Musculoskeletal discomfort [Recovered/Resolved]
  - Insomnia [None]
  - Intentional product misuse [None]
  - Fatigue [Not Recovered/Not Resolved]
  - Skin discolouration [Recovered/Resolved]
  - Hepatomegaly [None]
  - Vomiting [Not Recovered/Not Resolved]
  - Pain in extremity [Recovered/Resolved]
  - Glossodynia [None]
  - Pain of skin [None]
  - Feeling abnormal [None]
  - Hypogeusia [None]
  - Nausea [None]
  - Pain in extremity [None]
  - Malaise [None]
  - Abdominal pain upper [Recovering/Resolving]
  - Rhinalgia [None]
  - Nausea [Not Recovered/Not Resolved]
  - Diarrhoea [Not Recovered/Not Resolved]
  - Hyperkeratosis [Recovered/Resolved]
  - Vomiting [None]
  - Product dose omission [None]
  - Gastric ulcer haemorrhage [None]
  - Depressed mood [None]
  - Dry mouth [None]
  - Dehydration [None]
  - Fatigue [None]
  - Blister [Recovered/Resolved]

NARRATIVE: CASE EVENT DATE: 2018
